FAERS Safety Report 7374382 (Version 2)
Quarter: 2014Q2

REPORT INFORMATION
  Report Type: Spontaneous
  Country: US (occurrence: US)
  Receive Date: 20100503
  Receipt Date: 20140529
  Transmission Date: 20141212
  Serious: No
  Sender: FDA-Public Use
  Company Number: US-ASTRAZENECA-2009SE24271

PATIENT
  Age: 55 Year
  Sex: Male
  Weight: 96.2 kg

DRUGS (4)
  1. NEXIUM [Suspect]
     Indication: GASTROOESOPHAGEAL REFLUX DISEASE
     Route: 048
     Dates: start: 200605, end: 2009
  2. ASPIRIN [Concomitant]
     Indication: COAGULOPATHY
  3. OVER COUNTER MEDICINE [Concomitant]
  4. OTHER MEDICATION [Concomitant]

REACTIONS (4)
  - Back injury [Unknown]
  - Throat irritation [Unknown]
  - Gastrooesophageal reflux disease [Unknown]
  - Intentional product misuse [Unknown]
